FAERS Safety Report 9623651 (Version 1)
Quarter: 2013Q4

REPORT INFORMATION
  Report Type: Report from Study
  Country: BR (occurrence: BR)
  Receive Date: 20131015
  Receipt Date: 20131015
  Transmission Date: 20140711
  Serious: Yes (Other)
  Sender: FDA-Public Use
  Company Number: PHHY2013BR115479

PATIENT
  Sex: Female

DRUGS (3)
  1. EXELON [Suspect]
     Dosage: 15 ML, Q12H
  2. VITAMIN B1 [Suspect]
     Dosage: UNK UKN, UNK
  3. COMPLEX B /00653501/ [Suspect]
     Dosage: UNK UKN, UNK

REACTIONS (2)
  - Eye haemorrhage [Unknown]
  - Platelet count decreased [Unknown]
